FAERS Safety Report 6367935-4 (Version None)
Quarter: 2009Q3

REPORT INFORMATION
  Report Type: 
  Country: None (occurrence: None)
  Receive Date: 20090922
  Receipt Date: 20081229
  Transmission Date: 20100115
  Serious: No
  Sender: FDA-Public Use
  Company Number: A0761913A

PATIENT
  Sex: Female

DRUGS (3)
  1. SEREVENT [Suspect]
     Indication: DRUG USE FOR UNKNOWN INDICATION
     Route: 055
     Dates: start: 20081201, end: 20081201
  2. UNKNOWN [Concomitant]
  3. BLOOD PRESSURE MEDICATION [Concomitant]

REACTIONS (4)
  - HYPOAESTHESIA [None]
  - HYPOAESTHESIA ORAL [None]
  - PARAESTHESIA [None]
  - PARAESTHESIA ORAL [None]
